FAERS Safety Report 23290952 (Version 1)
Quarter: 2023Q4

REPORT INFORMATION
  Report Type: Spontaneous
  Country: US (occurrence: US)
  Receive Date: 20231213
  Receipt Date: 20231213
  Transmission Date: 20240109
  Serious: No
  Sender: FDA-Public Use
  Company Number: US-AJANTA-2023AJA00219

PATIENT
  Age: 95 Year
  Sex: Male

DRUGS (1)
  1. RANOLAZINE [Suspect]
     Active Substance: RANOLAZINE
     Indication: Product used for unknown indication
     Dates: start: 2023

REACTIONS (1)
  - Product odour abnormal [Unknown]

NARRATIVE: CASE EVENT DATE: 20230911
